FAERS Safety Report 18807201 (Version 1)
Quarter: 2021Q1

REPORT INFORMATION
  Report Type: Spontaneous
  Country: US (occurrence: US)
  Receive Date: 20210128
  Receipt Date: 20210128
  Transmission Date: 20210419
  Serious: Yes (Other)
  Sender: FDA-Public Use
  Company Number: US-ENDO PHARMACEUTICALS INC-2020-006523

PATIENT
  Sex: Female

DRUGS (2)
  1. PERCOCET [Suspect]
     Active Substance: ACETAMINOPHEN\OXYCODONE HYDROCHLORIDE
     Dosage: UNK UNKNOWN, UNKNOWN
     Route: 065
     Dates: start: 2015
  2. PERCOCET [Suspect]
     Active Substance: ACETAMINOPHEN\OXYCODONE HYDROCHLORIDE
     Indication: PAIN
     Dosage: UNK UNKNOWN, UNKNOWN
     Route: 065
     Dates: start: 2014

REACTIONS (7)
  - Flat affect [Unknown]
  - Hypersomnia [Unknown]
  - Intentional product misuse [Unknown]
  - Drug dependence [Unknown]
  - Tremor [Unknown]
  - Constipation [Unknown]
  - Disturbance in attention [Unknown]
